FAERS Safety Report 7819599-8 (Version None)
Quarter: 2011Q4

REPORT INFORMATION
  Report Type: 
  Country: None (occurrence: None)
  Receive Date: 20111018
  Receipt Date: 20111018
  Transmission Date: 20120403
  Serious: Yes (Life-Threatening, Hospitalization)
  Sender: FDA-Public Use
  Company Number: None

PATIENT
  Age: 76 Year
  Sex: Female
  Weight: 70 kg

DRUGS (1)
  1. SUNITINIB MALATE [Suspect]
     Indication: METASTATIC RENAL CELL CARCINOMA
     Dosage: 37.5 MG
     Route: 048
     Dates: start: 20110929, end: 20111012

REACTIONS (7)
  - HYPOKALAEMIA [None]
  - BLOOD PRESSURE INCREASED [None]
  - PANCYTOPENIA [None]
  - PULSE ABSENT [None]
  - DIZZINESS [None]
  - LOSS OF CONSCIOUSNESS [None]
  - BLOOD MAGNESIUM DECREASED [None]
